FAERS Safety Report 4313636-3 (Version None)
Quarter: 2004Q1

REPORT INFORMATION
  Report Type: 
  Country: None (occurrence: None)
  Receive Date: 20040305
  Receipt Date: 20040223
  Transmission Date: 20041129
  Serious: Yes (Hospitalization)
  Sender: FDA-Public Use
  Company Number: KDL065005

PATIENT
  Age: 61 Year
  Sex: Male
  Weight: 122 kg

DRUGS (1)
  1. EPOGEN [Suspect]
     Indication: PREOPERATIVE CARE
     Dosage: 8000 U, 3 IN 1 WEEKS
     Dates: start: 20030219

REACTIONS (5)
  - CARDIAC FAILURE CONGESTIVE [None]
  - CONDITION AGGRAVATED [None]
  - GENERALISED OEDEMA [None]
  - PNEUMONIA [None]
  - RENAL FAILURE [None]
